FAERS Safety Report 21033929 (Version 1)
Quarter: 2022Q3

REPORT INFORMATION
  Report Type: Spontaneous
  Country: CN (occurrence: CN)
  Receive Date: 20220701
  Receipt Date: 20220701
  Transmission Date: 20221026
  Serious: Yes (Other)
  Sender: FDA-Public Use
  Company Number: CN-PFIZER INC-PV202200011514

PATIENT
  Age: 36 Year
  Sex: Female
  Weight: 55 kg

DRUGS (1)
  1. CELEBREX [Suspect]
     Active Substance: CELECOXIB
     Indication: Analgesic therapy
     Dosage: 0.2 DF, 2X/DAY
     Route: 048
     Dates: start: 20220610, end: 20220617

REACTIONS (8)
  - Hypersensitivity [Recovering/Resolving]
  - Mouth swelling [Recovering/Resolving]
  - Oral pain [Recovering/Resolving]
  - Oral pruritus [Recovering/Resolving]
  - Lip swelling [Recovering/Resolving]
  - Lip pruritus [Recovering/Resolving]
  - Lip pain [Recovering/Resolving]
  - Rash [Recovering/Resolving]

NARRATIVE: CASE EVENT DATE: 20220617
